FAERS Safety Report 18607452 (Version 1)
Quarter: 2020Q4

REPORT INFORMATION
  Report Type: Spontaneous
  Country: US (occurrence: US)
  Receive Date: 20201212
  Receipt Date: 20201212
  Transmission Date: 20210114
  Serious: No
  Sender: FDA-Public Use
  Company Number: US-LUPIN PHARMACEUTICALS INC.-2020-09034

PATIENT
  Age: 40 Year
  Sex: Female
  Weight: 95.24 kg

DRUGS (4)
  1. ALBUTEROL SULFATE INHALATION AEROSOL, 90 MCG/ACTUATION [Suspect]
     Active Substance: ALBUTEROL SULFATE
     Indication: MYCOTIC ALLERGY
     Dosage: 8 GRAM,1 OR 2 PUFFS AS NEEDED
     Dates: start: 20201103
  2. ALBUTEROL SULFATE INHALATION AEROSOL, 90 MCG/ACTUATION [Suspect]
     Active Substance: ALBUTEROL SULFATE
     Indication: DUST ALLERGY
     Dosage: 8 GRAM,1 OR 2 PUFFS AS NEEDED
     Dates: start: 20201030, end: 20201103
  3. LEVOTHYROXINE. [Concomitant]
     Active Substance: LEVOTHYROXINE
     Indication: PRODUCT USED FOR UNKNOWN INDICATION
     Dosage: UNK
     Route: 048
  4. ALBUTEROL SULFATE INHALATION AEROSOL, 90 MCG/ACTUATION [Suspect]
     Active Substance: ALBUTEROL SULFATE
     Indication: ALLERGY TO ANIMAL

REACTIONS (7)
  - Drug dose omission by device [Unknown]
  - Neck pain [Recovering/Resolving]
  - Device malfunction [Unknown]
  - Hypersensitivity [Recovering/Resolving]
  - Cough [Recovering/Resolving]
  - Musculoskeletal chest pain [Unknown]
  - Device delivery system issue [Unknown]

NARRATIVE: CASE EVENT DATE: 20201103
